FAERS Safety Report 5517802-0 (Version None)
Quarter: 2007Q4

REPORT INFORMATION
  Report Type: 
  Country: None (occurrence: None)
  Receive Date: 20071113
  Receipt Date: 20071024
  Transmission Date: 20080405
  Serious: Yes (Other)
  Sender: FDA-Public Use
  Company Number: 071004566

PATIENT
  Age: 14 Year
  Sex: Female
  Weight: 53.0709 kg

DRUGS (2)
  1. EQUATE SINUS CONGESTION AND PAIN (GUAIFENESIN, ACETAMINOPHEN,PHENYLEPH [Suspect]
     Indication: NASOPHARYNGITIS
     Dosage: 2TAB, B.I.D., ORAL
     Route: 048
     Dates: start: 20071009, end: 20071009
  2. DELSYM [Suspect]
     Indication: COUGH
     Dosage: 2TSP, B.I.D., ORAL
     Route: 048
     Dates: start: 20071009, end: 20071009

REACTIONS (1)
  - DYSTONIA [None]
